FAERS Safety Report 24844097 (Version 1)
Quarter: 2025Q1

REPORT INFORMATION
  Report Type: Spontaneous
  Country: US (occurrence: US)
  Receive Date: 20250115
  Receipt Date: 20250115
  Transmission Date: 20250409
  Serious: No
  Sender: SANOFI AVENTIS
  Company Number: US-SA-2025SA010037

PATIENT
  Age: 61 Year
  Sex: Male

DRUGS (21)
  1. DUPIXENT [Suspect]
     Active Substance: DUPILUMAB
     Indication: Nasal polyps
     Dosage: 300 MG, QOW
     Route: 058
     Dates: start: 20230203
  2. ACYCLOVIR [Concomitant]
     Active Substance: ACYCLOVIR
  3. ALBUTEROL SULFATE [Concomitant]
     Active Substance: ALBUTEROL SULFATE
  4. AMLODIPINE [Concomitant]
     Active Substance: AMLODIPINE BESYLATE
  5. AZELASTINE [Concomitant]
     Active Substance: AZELASTINE
  6. BENZONATATE [Concomitant]
     Active Substance: BENZONATATE
  7. BENZOYL PEROXIDE [Concomitant]
     Active Substance: BENZOYL PEROXIDE
  8. CICLOPIROX [Concomitant]
     Active Substance: CICLOPIROX
  9. CLOBETASOL [Concomitant]
     Active Substance: CLOBETASOL
  10. FAMOTIDINE [Concomitant]
     Active Substance: FAMOTIDINE
  11. A-HYDROCORT [Concomitant]
     Active Substance: HYDROCORTISONE SODIUM SUCCINATE
  12. MIRVASO [Concomitant]
     Active Substance: BRIMONIDINE TARTRATE
  13. MOMETASONE [Concomitant]
     Active Substance: MOMETASONE
  14. NAPROXEN [Concomitant]
     Active Substance: NAPROXEN
  15. OXYCODONE [Concomitant]
     Active Substance: OXYCODONE
  16. PREDNISONE [Concomitant]
     Active Substance: PREDNISONE
  17. PREDNISONE [Concomitant]
     Active Substance: PREDNISONE
  18. ROSUVASTATIN [Concomitant]
     Active Substance: ROSUVASTATIN
  19. SIMVASTATIN [Concomitant]
     Active Substance: SIMVASTATIN
  20. SODIUM SULFATE [Concomitant]
     Active Substance: SODIUM SULFATE
  21. TRELEGY ELLIPTA [Concomitant]
     Active Substance: FLUTICASONE FUROATE\UMECLIDINIUM BROMIDE\VILANTEROL TRIFENATATE

REACTIONS (1)
  - Drug ineffective [Unknown]
